FAERS Safety Report 7289302-1 (Version None)
Quarter: 2011Q1

REPORT INFORMATION
  Report Type: 
  Country: None (occurrence: None)
  Receive Date: 20110211
  Receipt Date: 20110131
  Transmission Date: 20110831
  Serious: Yes (Hospitalization)
  Sender: FDA-Public Use
  Company Number: FR-ELI_LILLY_AND_COMPANY-FR201101007364

PATIENT
  Sex: Male

DRUGS (10)
  1. LYRICA [Concomitant]
     Dosage: 50 MG, 2/D
     Route: 065
  2. PARACETAMOL [Concomitant]
     Dosage: UNK, UNKNOWN
     Route: 065
  3. SERETIDE [Concomitant]
     Dosage: UNK, UNKNOWN
     Route: 065
  4. FOLIC ACID [Concomitant]
     Dosage: 0.4 MG, DAILY (1/D)
     Route: 065
  5. ALIMTA [Suspect]
     Indication: NON-SMALL CELL LUNG CANCER
     Dosage: 500 MG/M2, UNKNOWN
     Route: 042
     Dates: start: 20101019
  6. CARBOPLATIN [Concomitant]
     Indication: NON-SMALL CELL LUNG CANCER
     Dosage: UNK, UNKNOWN
     Route: 042
     Dates: start: 20101019
  7. VALSARTAN [Concomitant]
     Dosage: UNK, UNKNOWN
     Route: 065
  8. GLUCOVANCE [Concomitant]
     Dosage: UNK, UNKNOWN
     Route: 065
  9. TAHOR [Concomitant]
     Dosage: UNK, UNKNOWN
     Route: 065
  10. ASPIRIN [Concomitant]
     Dosage: UNK, UNKNOWN
     Route: 065

REACTIONS (3)
  - RASH [None]
  - HYPERSENSITIVITY [None]
  - DERMATITIS EXFOLIATIVE [None]
